FAERS Safety Report 15764833 (Version 1)
Quarter: 2018Q4

REPORT INFORMATION
  Report Type: Spontaneous
  Country: NZ (occurrence: NZ)
  Receive Date: 20181227
  Receipt Date: 20181227
  Transmission Date: 20190205
  Serious: Yes (Disabling, Other)
  Sender: FDA-Public Use
  Company Number: PHHY2018NZ033917

PATIENT
  Age: 76 Year
  Sex: Male

DRUGS (5)
  1. NILOTINIB [Suspect]
     Active Substance: NILOTINIB
     Indication: CHRONIC MYELOID LEUKAEMIA
     Route: 065
  2. BOSUTINIB [Suspect]
     Active Substance: BOSUTINIB
     Indication: PRODUCT USED FOR UNKNOWN INDICATION
     Dosage: UNK
     Route: 065
  3. GLIVEC [Suspect]
     Active Substance: IMATINIB MESYLATE
     Indication: CHRONIC MYELOID LEUKAEMIA
     Dosage: 40 MG, BID
     Route: 065
  4. DASATINIB. [Suspect]
     Active Substance: DASATINIB
     Indication: PRODUCT USED FOR UNKNOWN INDICATION
     Dosage: UNK
     Route: 005
  5. PONATINIB [Suspect]
     Active Substance: PONATINIB
     Indication: PRODUCT USED FOR UNKNOWN INDICATION
     Dosage: UNK
     Route: 065

REACTIONS (21)
  - Pleural effusion [Recovering/Resolving]
  - Peripheral vascular disorder [Unknown]
  - Oedema genital [Unknown]
  - Haemoglobin decreased [Unknown]
  - Cough [Unknown]
  - Pallor [Unknown]
  - Arterial thrombosis [Unknown]
  - Fluid retention [Recovering/Resolving]
  - Oedema [Unknown]
  - Atrial fibrillation [Unknown]
  - Sinus arrhythmia [Unknown]
  - Drug intolerance [Unknown]
  - Renal impairment [Unknown]
  - Gait disturbance [Unknown]
  - Dyspnoea exertional [Unknown]
  - Oedema peripheral [Unknown]
  - Blood sodium decreased [Unknown]
  - Dyspnoea [Unknown]
  - Therapeutic response decreased [Unknown]
  - Globulins increased [Unknown]
  - Cytogenetic analysis abnormal [Unknown]

NARRATIVE: CASE EVENT DATE: 20171016
